FAERS Safety Report 14426583 (Version 1)
Quarter: 2018Q1

REPORT INFORMATION
  Report Type: Spontaneous
  Country: BE (occurrence: BE)
  Receive Date: 20180123
  Receipt Date: 20180123
  Transmission Date: 20180509
  Serious: Yes (Hospitalization)
  Sender: FDA-Public Use
  Company Number: BE-MYLANLABS-2018M1004727

PATIENT

DRUGS (3)
  1. SUFENTANIL [Suspect]
     Active Substance: SUFENTANIL
     Indication: INDUCTION OF ANAESTHESIA
     Dosage: 1 G, UNK
     Route: 064
  2. BUPIVACAINE. [Suspect]
     Active Substance: BUPIVACAINE
     Indication: INDUCTION OF ANAESTHESIA
     Dosage: 7.5 MG
     Route: 064
  3. CHLOROPROCAINE [Suspect]
     Active Substance: CHLOROPROCAINE
     Indication: INDUCTION OF ANAESTHESIA
     Dosage: 40 MG, UNK
     Route: 064

REACTIONS (2)
  - Respiratory distress [Recovering/Resolving]
  - Foetal exposure during pregnancy [Recovered/Resolved]
